FAERS Safety Report 6088673-1 (Version None)
Quarter: 2009Q1

REPORT INFORMATION
  Report Type: 
  Country: None (occurrence: None)
  Receive Date: 20090224
  Receipt Date: 20090220
  Transmission Date: 20090719
  Serious: Yes (Hospitalization, Disabling)
  Sender: FDA-Public Use
  Company Number: JP-BRISTOL-MYERS SQUIBB COMPANY-14516504

PATIENT
  Age: 74 Year
  Sex: Female

DRUGS (6)
  1. TAXOL [Suspect]
     Indication: OVARIAN CANCER
     Route: 041
     Dates: start: 20090106, end: 20090106
  2. PARAPLATIN [Suspect]
     Indication: OVARIAN CANCER
     Route: 042
     Dates: start: 20090106, end: 20090106
  3. POLARAMINE [Concomitant]
     Route: 041
     Dates: start: 20090106, end: 20090106
  4. DECADRONE [Concomitant]
     Route: 041
     Dates: start: 20090106, end: 20090106
  5. ZANTAC [Concomitant]
     Route: 041
     Dates: start: 20090106, end: 20090106
  6. NASEA [Concomitant]
     Route: 041
     Dates: start: 20090106, end: 20090106

REACTIONS (2)
  - PLATELET COUNT DECREASED [None]
  - VISUAL ACUITY REDUCED [None]
